FAERS Safety Report 9734564 (Version 2)
Quarter: 2014Q1

REPORT INFORMATION
  Report Type: Spontaneous
  Country: AU (occurrence: AU)
  Receive Date: 20131206
  Receipt Date: 20140124
  Transmission Date: 20141002
  Serious: Yes (Life-Threatening, Hospitalization)
  Sender: FDA-Public Use
  Company Number: AU-BRISTOL-MYERS SQUIBB COMPANY-19873397

PATIENT
  Age: 65 Year
  Sex: Female

DRUGS (4)
  1. APIXABAN [Suspect]
     Indication: KNEE ARTHROPLASTY
     Dosage: TABS
     Route: 048
     Dates: start: 20131022
  2. CLEXANE [Concomitant]
     Indication: PROPHYLAXIS
     Dosage: INJECTION
     Route: 058
     Dates: start: 20131016, end: 20131021
  3. ASTRIX [Concomitant]
     Indication: PROPHYLAXIS
     Dosage: TABS
     Route: 048
  4. LIPIDIL [Concomitant]
     Dosage: TABS

REACTIONS (2)
  - Pulmonary embolism [Not Recovered/Not Resolved]
  - Deep vein thrombosis [Not Recovered/Not Resolved]
